FAERS Safety Report 10159318 (Version 1)
Quarter: 2014Q2

REPORT INFORMATION
  Report Type: Spontaneous
  Country: DE (occurrence: DE)
  Receive Date: 20140508
  Receipt Date: 20140508
  Transmission Date: 20141212
  Serious: Yes (Hospitalization, Other)
  Sender: FDA-Public Use
  Company Number: PHHY2014DE054612

PATIENT
  Sex: Male

DRUGS (2)
  1. EXFORGE HCT [Suspect]
     Indication: HYPERTENSION
     Dosage: 1 DF (VALS 320MG, AMLO 10MG HCTZ 25MG) QD
  2. BELOC-ZOC FORTE [Concomitant]
     Indication: HYPERTENSION

REACTIONS (6)
  - Benign prostatic hyperplasia [Unknown]
  - Incontinence [Recovering/Resolving]
  - Neuropathy peripheral [Unknown]
  - Atrial fibrillation [Unknown]
  - Hydrocephalus [Unknown]
  - Erythema [Unknown]
